FAERS Safety Report 6265200-7 (Version None)
Quarter: 2009Q3

REPORT INFORMATION
  Report Type: 
  Country: None (occurrence: None)
  Receive Date: 20090713
  Receipt Date: 20090629
  Transmission Date: 20100115
  Serious: Yes (Other)
  Sender: FDA-Public Use
  Company Number: JP-ROCHE-640935

PATIENT
  Age: 41 Year
  Sex: Female

DRUGS (2)
  1. RIBAVIRIN [Suspect]
     Route: 065
     Dates: start: 20060601, end: 20061115
  2. PEG-INTRON [Suspect]
     Route: 065
     Dates: start: 20060601, end: 20061115

REACTIONS (1)
  - POUCHITIS [None]
